FAERS Safety Report 7399047-5 (Version None)
Quarter: 2011Q2

REPORT INFORMATION
  Report Type: 
  Country: None (occurrence: None)
  Receive Date: 20110407
  Receipt Date: 20110323
  Transmission Date: 20111010
  Serious: Yes (Hospitalization)
  Sender: FDA-Public Use
  Company Number: DE-ELI_LILLY_AND_COMPANY-DE200808000005

PATIENT
  Age: 29 Year
  Sex: Female
  Weight: 67 kg

DRUGS (4)
  1. KEVATRIL [Concomitant]
     Indication: PROPHYLAXIS
     Dosage: 1 MG, UNKNOWN
     Route: 042
     Dates: start: 20061025
  2. DOCETAXEL [Suspect]
     Indication: BREAST CANCER
     Dosage: 132 MG, UNKNOWN
     Route: 042
     Dates: start: 20061025
  3. FORTECORTIN [Concomitant]
     Indication: PROPHYLAXIS
     Dosage: 20 MG, UNKNOWN
     Route: 042
     Dates: start: 20061025
  4. GEMCITABINE HYDROCHLORIDE [Suspect]
     Indication: BREAST CANCER
     Dosage: 1770 MG, UNKNOWN
     Route: 042
     Dates: start: 20061025

REACTIONS (3)
  - PNEUMONIA PRIMARY ATYPICAL [None]
  - INFLUENZA [None]
  - LEUKOPENIA [None]
